FAERS Safety Report 5959453-X (Version None)
Quarter: 2008Q4

REPORT INFORMATION
  Report Type: 
  Country: None (occurrence: None)
  Receive Date: 20081119
  Receipt Date: 20081119
  Transmission Date: 20090506
  Serious: Yes (Other)
  Sender: FDA-Public Use
  Company Number: None

PATIENT

DRUGS (1)
  1. BACTRIM DS [Suspect]
     Dates: start: 20081025, end: 20081025

REACTIONS (6)
  - BURNING SENSATION [None]
  - DIARRHOEA [None]
  - DRUG PRESCRIBING ERROR [None]
  - DYSURIA [None]
  - MALAISE [None]
  - PRODUCT QUALITY ISSUE [None]
